FAERS Safety Report 21581655 (Version 4)
Quarter: 2023Q1

REPORT INFORMATION
  Report Type: Report from Study
  Country: GB (occurrence: GB)
  Receive Date: 20221111
  Receipt Date: 20230107
  Transmission Date: 20230418
  Serious: Yes (Hospitalization, Other)
  Sender: FDA-Public Use
  Company Number: GB-JNJFOC-20200705160

PATIENT

DRUGS (3)
  1. DEXAMETHASONE [Suspect]
     Active Substance: DEXAMETHASONE
     Indication: Prostate cancer metastatic
     Dosage: 0.5 MG, QD
     Route: 048
     Dates: start: 20200731
  2. PREDNISOLONE [Suspect]
     Active Substance: PREDNISOLONE
     Indication: Prostate cancer metastatic
     Dosage: 5 MG, QD
     Route: 048
     Dates: start: 201912, end: 202007
  3. ABIRATERONE ACETATE [Suspect]
     Active Substance: ABIRATERONE ACETATE
     Indication: Prostate cancer metastatic
     Dosage: 1000 MG, QD
     Route: 048
     Dates: start: 20191201, end: 202007

REACTIONS (8)
  - Acute kidney injury [Recovered/Resolved]
  - Haemoglobin decreased [Recovered/Resolved]
  - Unresponsive to stimuli [Recovered/Resolved]
  - Pneumonia [Not Recovered/Not Resolved]
  - Blood alkaline phosphatase increased [Not Recovered/Not Resolved]
  - Prostate cancer metastatic [Not Recovered/Not Resolved]
  - Hypokalaemia [Recovered/Resolved]
  - Femur fracture [Recovering/Resolving]

NARRATIVE: CASE EVENT DATE: 20200601
